FAERS Safety Report 5374434-5 (Version None)
Quarter: 2007Q2

REPORT INFORMATION
  Report Type: 
  Country: None (occurrence: None)
  Receive Date: 20070629
  Receipt Date: 20070619
  Transmission Date: 20071010
  Serious: Yes (Life-Threatening, Other)
  Sender: FDA-Public Use
  Company Number: JP-JNJFOC-20060905413

PATIENT
  Sex: Female
  Weight: 58 kg

DRUGS (10)
  1. REMICADE [Suspect]
     Route: 042
  2. REMICADE [Suspect]
     Route: 042
  3. REMICADE [Suspect]
     Indication: RHEUMATOID ARTHRITIS
     Route: 042
  4. METHOTREXATE [Suspect]
     Indication: RHEUMATOID ARTHRITIS
     Route: 048
  5. AZULFIDINE EN-TABS [Concomitant]
     Indication: RHEUMATOID ARTHRITIS
  6. NABOAL SR [Concomitant]
     Indication: RHEUMATOID ARTHRITIS
     Route: 048
  7. FOSAMAC [Concomitant]
     Indication: OSTEOPOROSIS
     Route: 048
  8. ALOSENN [Concomitant]
     Indication: CONSTIPATION
     Route: 048
  9. GASTER D [Concomitant]
     Indication: GASTRITIS
     Route: 048
  10. ALOSENN [Concomitant]
     Indication: GASTRITIS
     Route: 048

REACTIONS (2)
  - ASCITES [None]
  - PULMONARY TUBERCULOSIS [None]
